FAERS Safety Report 9451562 (Version 1)
Quarter: 2013Q3

REPORT INFORMATION
  Report Type: Spontaneous
  Country: JP (occurrence: JP)
  Receive Date: 20130811
  Receipt Date: 20130811
  Transmission Date: 20140515
  Serious: Yes (Other)
  Sender: FDA-Public Use
  Company Number: JP-MYLANLABS-2013S1017080

PATIENT
  Age: 62 Year
  Sex: Female

DRUGS (6)
  1. PREDNISOLONE [Suspect]
     Indication: ASTHMA
     Route: 065
  2. PREDNISOLONE [Suspect]
     Indication: ASTHMA
     Dosage: 30MG/DAY
     Route: 065
  3. AMLODIPINE [Concomitant]
     Route: 065
  4. LACTOBACILLUS CASEI [Concomitant]
     Route: 065
  5. ALBUMIN TANNATE [Concomitant]
     Route: 065
  6. BUTROPIUM [Concomitant]
     Route: 065

REACTIONS (1)
  - Pneumatosis intestinalis [Recovered/Resolved]
